FAERS Safety Report 19085658 (Version 1)
Quarter: 2021Q2

REPORT INFORMATION
  Report Type: Spontaneous
  Country: FR (occurrence: FR)
  Receive Date: 20210402
  Receipt Date: 20210402
  Transmission Date: 20210717
  Serious: Yes (Hospitalization)
  Sender: FDA-Public Use
  Company Number: FR-SUN PHARMACEUTICAL INDUSTRIES LTD-2021RR-289026

PATIENT
  Age: 23 Year
  Sex: Female

DRUGS (6)
  1. MALACEF 60MG, POUDRE ET SOLVANT POUR SOLUTION INJECTABLE [Suspect]
     Active Substance: ARTESUNATE
     Indication: MALARIA
     Dosage: 150 MG ()
     Route: 042
     Dates: start: 20210212, end: 20210216
  2. LOVENOX [Suspect]
     Active Substance: ENOXAPARIN SODIUM
     Indication: THROMBOSIS PROPHYLAXIS
     Dosage: 4000 INTERNATIONAL UNIT, DAILY
     Route: 058
     Dates: start: 20210215
  3. EURARTESIM 320 MG/40 MG, COMPRIME PELLICULE [Suspect]
     Active Substance: ARTENIMOL\PIPERAQUINE PHOSPHATE
     Indication: MALARIA
     Dosage: 3 DOSAGE FORM, DAILY
     Route: 048
     Dates: start: 20210217, end: 20210219
  4. ARTESUNATE [Suspect]
     Active Substance: ARTESUNATE
     Indication: MALARIA
     Dosage: 1 DOSAGE FORM, DAILY
     Route: 048
     Dates: start: 20210209, end: 20210211
  5. ACUPAN [Suspect]
     Active Substance: NEFOPAM HYDROCHLORIDE
     Indication: PAIN
     Dosage: 20 MILLIGRAM, DAILY
     Route: 048
     Dates: start: 20210215, end: 20210219
  6. PANTOPRAZOLE [Suspect]
     Active Substance: PANTOPRAZOLE
     Indication: GASTRIC ULCER
     Dosage: 20 MILLIGRAM, DAILY
     Route: 048
     Dates: start: 20210215

REACTIONS (2)
  - Agranulocytosis [Recovered/Resolved]
  - Haemolytic anaemia [Not Recovered/Not Resolved]

NARRATIVE: CASE EVENT DATE: 20210219
